FAERS Safety Report 6391803-5 (Version None)
Quarter: 2009Q4

REPORT INFORMATION
  Report Type: 
  Country: None (occurrence: None)
  Receive Date: 20091005
  Receipt Date: 20090924
  Transmission Date: 20100525
  Serious: Yes (Hospitalization)
  Sender: FDA-Public Use
  Company Number: ADR32982009

PATIENT
  Sex: Male

DRUGS (6)
  1. RAMIPRIL [Suspect]
     Indication: HYPERTENSION
     Dosage: 5 MG - 1/1DAY, ORAL
     Route: 048
  2. ATENOLOL [Concomitant]
  3. SEROQUEL [Concomitant]
  4. ASPIRIN [Concomitant]
  5. PARACETAMOL [Concomitant]
  6. PAROXETINE [Concomitant]

REACTIONS (4)
  - HYPERTENSION [None]
  - HYPOTENSION [None]
  - INCORRECT DOSE ADMINISTERED [None]
  - SYNCOPE [None]
